FAERS Safety Report 11666988 (Version 1)
Quarter: 2015Q4

REPORT INFORMATION
  Report Type: Spontaneous
  Country: US (occurrence: US)
  Receive Date: 20151027
  Receipt Date: 20151027
  Transmission Date: 20160304
  Serious: No
  Sender: FDA-Public Use
  Company Number: US-ELI_LILLY_AND_COMPANY-US201002004240

PATIENT
  Sex: Female

DRUGS (2)
  1. FORTEO [Suspect]
     Active Substance: TERIPARATIDE
     Indication: OSTEOPOROSIS
     Dosage: 20 UG, DAILY (1/D)
     Route: 065
     Dates: start: 200910
  2. ADVIL [Concomitant]
     Active Substance: IBUPROFEN
     Dosage: UNK, EVERY 4 HRS
     Route: 065

REACTIONS (9)
  - Pain in extremity [Unknown]
  - Arthritis [Unknown]
  - Muscle tightness [Unknown]
  - Pain [Unknown]
  - Myalgia [Unknown]
  - Mobility decreased [Unknown]
  - Arthralgia [Unknown]
  - Sciatica [Unknown]
  - Spinal disorder [Unknown]
